FAERS Safety Report 4889905-5 (Version None)
Quarter: 2006Q1

REPORT INFORMATION
  Report Type: 
  Country: None (occurrence: None)
  Receive Date: 20060124
  Receipt Date: 20051005
  Transmission Date: 20060701
  Serious: Yes (Hospitalization)
  Sender: FDA-Public Use
  Company Number: US-MERCK-0510USA03412

PATIENT
  Age: 31 Year
  Sex: Female
  Weight: 75 kg

DRUGS (6)
  1. VIOXX [Suspect]
     Indication: PAIN
     Route: 048
     Dates: end: 20030101
  2. TEGRETOL [Concomitant]
     Route: 048
  3. ZANAFLEX [Concomitant]
     Route: 048
  4. COUMADIN [Concomitant]
     Route: 048
  5. ZOCOR [Concomitant]
     Route: 048
  6. PAXIL [Concomitant]
     Route: 048

REACTIONS (9)
  - CHEST PAIN [None]
  - ECCHYMOSIS [None]
  - FLUID RETENTION [None]
  - HYPERTENSION [None]
  - INTERVERTEBRAL DISC DISORDER [None]
  - MIGRAINE [None]
  - THROMBOSIS [None]
  - UTERINE DISORDER [None]
  - VAGINAL HAEMORRHAGE [None]
